FAERS Safety Report 9504191 (Version 1)
Quarter: 2013Q3

REPORT INFORMATION
  Report Type: Spontaneous
  Country: US (occurrence: None)
  Receive Date: 20130905
  Receipt Date: 20130905
  Transmission Date: 20140515
  Serious: Yes (Hospitalization)
  Sender: FDA-Public Use
  Company Number: None

PATIENT
  Age: 42 Year
  Sex: Female
  Weight: 74 kg

DRUGS (4)
  1. NORGESTREL/ETHINYL ESTRADIOL [Suspect]
     Indication: ENDOMETRIOSIS
     Dosage: ONE TABLETS QD ORAL
     Route: 048
  2. DEXLANSOPRAZOLE [Concomitant]
  3. TOPIRAMATE [Concomitant]
  4. VALACYCLOVIR [Concomitant]

REACTIONS (4)
  - Dyspnoea [None]
  - Pain in extremity [None]
  - Deep vein thrombosis [None]
  - Pulmonary embolism [None]
